FAERS Safety Report 7645581-X (Version None)
Quarter: 2011Q3

REPORT INFORMATION
  Report Type: 
  Country: None (occurrence: None)
  Receive Date: 20110729
  Receipt Date: 20110725
  Transmission Date: 20111222
  Serious: No
  Sender: FDA-Public Use
  Company Number: US-PFIZER INC-2011117342

PATIENT
  Sex: Female
  Weight: 68.027 kg

DRUGS (3)
  1. PREDNISONE [Concomitant]
     Indication: URTICARIA
     Dosage: 20 MG, UNK
  2. ZYVOX [Suspect]
     Indication: COUGH
     Dosage: UNK
     Route: 048
     Dates: start: 20110529
  3. ZYVOX [Suspect]
     Indication: PYREXIA

REACTIONS (7)
  - HEADACHE [None]
  - URTICARIA [None]
  - PRURITUS [None]
  - COUGH [None]
  - DRUG HYPERSENSITIVITY [None]
  - SINUS DISORDER [None]
  - NASAL CONGESTION [None]
